FAERS Safety Report 8155706-8 (Version None)
Quarter: 2012Q1

REPORT INFORMATION
  Report Type: 
  Country: None (occurrence: None)
  Receive Date: 20120222
  Receipt Date: 20120214
  Transmission Date: 20120608
  Serious: Yes (Death, Hospitalization)
  Sender: FDA-Public Use
  Company Number: US-CELGENEUS-163-21880-12021695

PATIENT
  Age: 81 Year
  Sex: Male

DRUGS (11)
  1. APAP TAB [Concomitant]
     Route: 065
  2. ALLOPURINOL [Concomitant]
     Route: 065
  3. FUROSEMIDE [Concomitant]
     Route: 065
  4. DOCUSATE [Concomitant]
     Route: 065
  5. FLUTICASONE PROPIONATE/SALMETEROL [Concomitant]
     Route: 065
  6. REVLIMID [Suspect]
     Dosage: 15 MILLIGRAM
     Route: 048
     Dates: start: 20110924
  7. IPRATROPIUM BROMIDE AND ALBUTEROL SULFATE [Concomitant]
     Route: 065
  8. REVLIMID [Suspect]
     Indication: MULTIPLE MYELOMA
     Dosage: 15 MILLIGRAM
     Route: 048
     Dates: start: 20100801, end: 20110201
  9. REVLIMID [Suspect]
     Dosage: 15 MILLIGRAM
     Route: 048
     Dates: start: 20110601, end: 20110901
  10. OMEPRAZOLE [Concomitant]
     Route: 065
  11. ASPIRIN [Concomitant]
     Route: 065

REACTIONS (3)
  - GASTROENTERITIS [None]
  - SEPSIS [None]
  - MULTIPLE MYELOMA [None]
